FAERS Safety Report 6842700-X (Version None)
Quarter: 2010Q3

REPORT INFORMATION
  Report Type: 
  Country: None (occurrence: None)
  Receive Date: 20100714
  Receipt Date: 20070801
  Transmission Date: 20110219
  Serious: No
  Sender: FDA-Public Use
  Company Number: US-PFIZER INC-2007065351

PATIENT
  Sex: Male
  Weight: 48.181 kg

DRUGS (6)
  1. CHANTIX [Suspect]
     Indication: SMOKING CESSATION THERAPY
     Dates: start: 20070727
  2. PRAVACHOL [Concomitant]
  3. PROSCAR [Concomitant]
  4. LORAZEPAM [Concomitant]
  5. NIFEDIPINE [Concomitant]
  6. NADOLOL [Concomitant]

REACTIONS (4)
  - ERUCTATION [None]
  - FLATULENCE [None]
  - MALAISE [None]
  - NAUSEA [None]
